FAERS Safety Report 18671541 (Version 1)
Quarter: 2020Q4

REPORT INFORMATION
  Report Type: Spontaneous
  Country: FR (occurrence: FR)
  Receive Date: 20201228
  Receipt Date: 20201228
  Transmission Date: 20210114
  Serious: Yes (Other)
  Sender: FDA-Public Use
  Company Number: FR-AUROBINDO-AUR-APL-2019-011686

PATIENT
  Age: 13 Year
  Sex: Male

DRUGS (2)
  1. AMOXICILLIN. [Suspect]
     Active Substance: AMOXICILLIN
     Indication: PRODUCT USED FOR UNKNOWN INDICATION
     Dosage: UNK
     Route: 065
  2. BUDESONIDE;FORMOTEROL [Concomitant]
     Active Substance: BUDESONIDE\FORMOTEROL
     Indication: ASTHMA
     Dosage: UNK
     Route: 065

REACTIONS (8)
  - Fixed eruption [Unknown]
  - Condition aggravated [Unknown]
  - Skin hyperpigmentation [Unknown]
  - Rash [Unknown]
  - Macule [Unknown]
  - Rash erythematous [Unknown]
  - Erythema [Unknown]
  - Drug hypersensitivity [Unknown]
